FAERS Safety Report 5756178-0 (Version None)
Quarter: 2008Q2

REPORT INFORMATION
  Report Type: 
  Country: None (occurrence: None)
  Receive Date: 20080602
  Receipt Date: 20080523
  Transmission Date: 20081010
  Serious: Yes (Other)
  Sender: FDA-Public Use
  Company Number: GB-ABBOTT-08P-167-0454463-00

PATIENT
  Sex: Female

DRUGS (8)
  1. VALPROATE SODIUM [Suspect]
     Indication: EPILEPSY
  2. VALPROATE SODIUM [Suspect]
  3. PHENYTOIN [Suspect]
     Indication: EPILEPSY
     Dates: start: 19990101, end: 19990819
  4. PHENYTOIN [Suspect]
     Dates: start: 19990819, end: 19990909
  5. PHENYTOIN [Suspect]
     Dates: start: 19990909
  6. PHENYTOIN [Suspect]
  7. VIGABATRIN [Suspect]
     Indication: EPILEPSY
     Dates: end: 19990715
  8. FOLIC ACID [Concomitant]
     Indication: DRUG USE FOR UNKNOWN INDICATION

REACTIONS (1)
  - GRAND MAL CONVULSION [None]
